FAERS Safety Report 22058133 (Version 2)
Quarter: 2023Q1

REPORT INFORMATION
  Report Type: Spontaneous
  Country: US (occurrence: None)
  Receive Date: 20230303
  Receipt Date: 20230312
  Transmission Date: 20230417
  Serious: Yes (Other)
  Sender: FDA-Public Use
  Company Number: US-ROCHE-3297073

PATIENT
  Sex: Female

DRUGS (1)
  1. HEMLIBRA [Suspect]
     Active Substance: EMICIZUMAB-KXWH
     Indication: Factor VIII deficiency
     Dosage: STRENGTH 60MG/ 0.4 ML
     Route: 058
     Dates: start: 20211006

REACTIONS (3)
  - Haemarthrosis [Unknown]
  - Haemorrhage [Unknown]
  - Injury [Unknown]
